FAERS Safety Report 21196934 (Version 1)
Quarter: 2022Q3

REPORT INFORMATION
  Report Type: Spontaneous
  Country: US (occurrence: US)
  Receive Date: 20220810
  Receipt Date: 20220810
  Transmission Date: 20221027
  Serious: No
  Sender: FDA-Public Use
  Company Number: US-Teikoku Pharma USA-TPU2022-00678

PATIENT
  Sex: Female
  Weight: 50.848 kg

DRUGS (3)
  1. LIDOCAINE PATCH [Suspect]
     Active Substance: LIDOCAINE
     Indication: Sciatica
     Route: 061
  2. LIDOCAINE [Concomitant]
     Active Substance: LIDOCAINE
     Indication: Sciatica
  3. 4-5 medications [Concomitant]
     Indication: Blood pressure measurement

REACTIONS (2)
  - Prescription drug used without a prescription [Unknown]
  - Expired product administered [Unknown]
